FAERS Safety Report 8263616-0 (Version None)
Quarter: 2012Q2

REPORT INFORMATION
  Report Type: 
  Country: None (occurrence: None)
  Receive Date: 20120405
  Receipt Date: 20120328
  Transmission Date: 20120825
  Serious: No
  Sender: FDA-Public Use
  Company Number: US-B.I. PHARMACEUTICALS,INC./RIDGEFIELD-2012-BP-05870BP

PATIENT
  Sex: Male

DRUGS (6)
  1. ASPIRIN [Concomitant]
     Dosage: 81 MG
     Route: 048
  2. FISH OIL [Concomitant]
     Indication: SUPPLEMENTATION THERAPY
     Route: 048
  3. LOSARTAN POTASSIUM [Concomitant]
     Route: 048
  4. CRESTOR [Concomitant]
     Dosage: 20 MG
     Route: 048
  5. ZETIA [Concomitant]
     Dosage: 10 MG
     Route: 048
  6. AGGRENOX [Suspect]
     Indication: CEREBROVASCULAR ACCIDENT PROPHYLAXIS
     Route: 048
     Dates: start: 20110901

REACTIONS (2)
  - BACK PAIN [None]
  - DEAFNESS BILATERAL [None]
